FAERS Safety Report 6372828-2 (Version None)
Quarter: 2009Q3

REPORT INFORMATION
  Report Type: 
  Country: None (occurrence: None)
  Receive Date: 20090924
  Receipt Date: 20090221
  Transmission Date: 20100115
  Serious: No
  Sender: FDA-Public Use
  Company Number: US-ASTRAZENECA-2008UW26425

PATIENT
  Age: 48 Year
  Sex: Female

DRUGS (1)
  1. SEROQUEL [Suspect]
     Route: 048
     Dates: end: 20090211

REACTIONS (11)
  - ABNORMAL DREAMS [None]
  - DRY MOUTH [None]
  - EYE PAIN [None]
  - FATIGUE [None]
  - FEELING HOT [None]
  - HEADACHE [None]
  - INSOMNIA [None]
  - MIGRAINE [None]
  - NIGHTMARE [None]
  - SLEEP DISORDER [None]
  - VISION BLURRED [None]
